FAERS Safety Report 9920212 (Version 1)
Quarter: 2014Q1

REPORT INFORMATION
  Report Type: Spontaneous
  Country: DE (occurrence: DE)
  Receive Date: 20140224
  Receipt Date: 20140224
  Transmission Date: 20141002
  Serious: Yes (Other)
  Sender: FDA-Public Use
  Company Number: PHHY2014DE022376

PATIENT
  Sex: Female

DRUGS (4)
  1. OLMESARTAN [Suspect]
     Indication: HYPERTENSION
     Dosage: 5 MG, UNK
  2. SIMVASTATIN [Suspect]
  3. ACETYLSALICYLIC ACID [Suspect]
  4. METHYLDOPA [Suspect]

REACTIONS (4)
  - Oligohydramnios [Recovered/Resolved]
  - Breech presentation [Unknown]
  - Premature labour [Unknown]
  - Maternal exposure during pregnancy [Unknown]
